FAERS Safety Report 14324946 (Version 1)
Quarter: 2017Q4

REPORT INFORMATION
  Report Type: Spontaneous
  Country: US (occurrence: US)
  Receive Date: 20171223
  Receipt Date: 20171223
  Transmission Date: 20180321
  Serious: Yes (Disabling)
  Sender: FDA-Public Use
  Company Number: None

PATIENT
  Age: 59 Year
  Weight: 69.75 kg

DRUGS (12)
  1. LANTUS [Concomitant]
     Active Substance: INSULIN GLARGINE
  2. TYLENOL [Concomitant]
     Active Substance: ACETAMINOPHEN
  3. RAPAMUNE [Concomitant]
     Active Substance: SIROLIMUS
  4. PREDNISONE. [Concomitant]
     Active Substance: PREDNISONE
  5. CRESTOR [Concomitant]
     Active Substance: ROSUVASTATIN CALCIUM
  6. ENALOPRIL [Concomitant]
  7. ALBUTEROL. [Concomitant]
     Active Substance: ALBUTEROL
  8. TRINTELLIX [Suspect]
     Active Substance: VORTIOXETINE HYDROBROMIDE
     Indication: MAJOR DEPRESSION
     Dosage: ?          QUANTITY:1 TABLET(S);?
     Route: 048
     Dates: start: 20170918, end: 20171222
  9. NOVOLOG [Concomitant]
     Active Substance: INSULIN ASPART
  10. FENOFIBRATE. [Concomitant]
     Active Substance: FENOFIBRATE
  11. DAILY VITAMIN [Concomitant]
     Active Substance: VITAMINS
  12. SLIM FAST [Concomitant]

REACTIONS (2)
  - Oedema peripheral [None]
  - Eye swelling [None]

NARRATIVE: CASE EVENT DATE: 20170920
